FAERS Safety Report 9221160 (Version 6)
Quarter: 2016Q2

REPORT INFORMATION
  Report Type: Spontaneous
  Country: US (occurrence: US)
  Receive Date: 20130409
  Receipt Date: 20160404
  Transmission Date: 20160815
  Serious: No
  Sender: FDA-Public Use
  Company Number: US-009507513-1304USA002761

PATIENT
  Sex: Male
  Weight: 83.9 kg

DRUGS (1)
  1. PROPECIA [Suspect]
     Active Substance: FINASTERIDE
     Indication: ALOPECIA
     Dosage: 1 MG, QD
     Route: 048
     Dates: start: 20100110, end: 20101228

REACTIONS (7)
  - Libido decreased [Not Recovered/Not Resolved]
  - Penile size reduced [Unknown]
  - Ejaculation disorder [Not Recovered/Not Resolved]
  - Erectile dysfunction [Not Recovered/Not Resolved]
  - Sexual dysfunction [Not Recovered/Not Resolved]
  - Hypertension [Unknown]
  - Semen volume decreased [Unknown]

NARRATIVE: CASE EVENT DATE: 201009
